FAERS Safety Report 4831133-3 (Version None)
Quarter: 2005Q4

REPORT INFORMATION
  Report Type: 
  Country: None (occurrence: None)
  Receive Date: 20051116
  Receipt Date: 20051116
  Transmission Date: 20060501
  Serious: Yes (Hospitalization)
  Sender: FDA-Public Use
  Company Number: None

PATIENT
  Age: 75 Year
  Sex: Male
  Weight: 79.8331 kg

DRUGS (1)
  1. ALLOPURINOL, 30MG  GENERIC FOR ZYLOPRIM.LBLR; QUALITEST [Suspect]
     Indication: GOUT
     Dosage: 1 PER DAY/MOUTH
     Route: 048
     Dates: start: 20050911, end: 20051114

REACTIONS (9)
  - ACNE [None]
  - ANOREXIA [None]
  - BLOOD PRESSURE DECREASED [None]
  - DEHYDRATION [None]
  - ERYTHEMA [None]
  - PYREXIA [None]
  - RASH [None]
  - SUNBURN [None]
  - VASCULITIS [None]
